FAERS Safety Report 12337656 (Version 1)
Quarter: 2016Q2

REPORT INFORMATION
  Report Type: Spontaneous
  Country: GB (occurrence: GB)
  Receive Date: 20160505
  Receipt Date: 20160505
  Transmission Date: 20160815
  Serious: Yes (Hospitalization)
  Sender: FDA-Public Use
  Company Number: PHHY2016GB058834

PATIENT
  Age: 32 Year
  Sex: Male

DRUGS (9)
  1. BISOPROLOL [Concomitant]
     Active Substance: BISOPROLOL
     Indication: PRODUCT USED FOR UNKNOWN INDICATION
     Dosage: 2.5 MG, QD
     Route: 048
     Dates: start: 20160205, end: 20160210
  2. FUROSEMIDE. [Concomitant]
     Active Substance: FUROSEMIDE
     Indication: PRODUCT USED FOR UNKNOWN INDICATION
     Dosage: 20 MG, QD
     Route: 048
     Dates: start: 20160203, end: 20160211
  3. TINZAPARIN SODIUM [Concomitant]
     Active Substance: TINZAPARIN SODIUM
     Indication: PROPHYLAXIS
     Dosage: 4,500UNITS/0.45ML
     Route: 058
     Dates: start: 20160120
  4. CEFTRIAXONE. [Suspect]
     Active Substance: CEFTRIAXONE
     Indication: STREPTOCOCCAL ENDOCARDITIS
     Dosage: 2 G, QD
     Route: 042
     Dates: start: 20160210, end: 20160211
  5. PARACETAMOL [Concomitant]
     Active Substance: ACETAMINOPHEN
     Indication: PAIN
     Dosage: 6 HOURLY.
     Route: 048
     Dates: start: 20160204
  6. CRYSTAPEN [Suspect]
     Active Substance: PENICILLIN G SODIUM
     Indication: STREPTOCOCCAL ENDOCARDITIS
     Dosage: 1.2 G, Q4H
     Route: 040
     Dates: start: 20160120, end: 20160210
  7. AMILORIDE [Concomitant]
     Active Substance: AMILORIDE
     Indication: PRODUCT USED FOR UNKNOWN INDICATION
     Dosage: 5 MG, QD
     Route: 048
     Dates: start: 20160203, end: 20160210
  8. OMEPRAZOLE. [Concomitant]
     Active Substance: OMEPRAZOLE
     Indication: PRODUCT USED FOR UNKNOWN INDICATION
     Dosage: TWICE A DAY THEN DECREASED TO ONCE DAILY
     Route: 048
     Dates: start: 20160203, end: 20160212
  9. ASPIRIN                            /00346701/ [Concomitant]
     Active Substance: ASCORBIC ACID\ASPIRIN
     Indication: PRODUCT USED FOR UNKNOWN INDICATION
     Dosage: 75 MG, QD
     Route: 048
     Dates: start: 20160120, end: 20160207

REACTIONS (4)
  - Mouth ulceration [Recovered/Resolved]
  - Rash maculo-papular [Recovered/Resolved]
  - Retinal exudates [Recovered/Resolved]
  - Erythema multiforme [Recovered/Resolved]
